FAERS Safety Report 20485888 (Version 2)
Quarter: 2022Q3

REPORT INFORMATION
  Report Type: Spontaneous
  Country: US (occurrence: None)
  Receive Date: 20220217
  Receipt Date: 20220826
  Transmission Date: 20221027
  Serious: Yes (Other)
  Sender: FDA-Public Use
  Company Number: 2022A066517

PATIENT
  Age: 63 Year
  Sex: Male
  Weight: 88.5 kg

DRUGS (67)
  1. NEXIUM [Suspect]
     Active Substance: ESOMEPRAZOLE MAGNESIUM
     Indication: Gastrooesophageal reflux disease
     Route: 048
     Dates: start: 2003, end: 2018
  2. NEXIUM 24HR [Suspect]
     Active Substance: ESOMEPRAZOLE MAGNESIUM
     Indication: Gastrooesophageal reflux disease
     Route: 048
     Dates: start: 2014, end: 2018
  3. PRILOSEC [Suspect]
     Active Substance: OMEPRAZOLE MAGNESIUM
     Indication: Gastrooesophageal reflux disease
     Route: 048
     Dates: start: 2003, end: 2018
  4. PRILOSEC [Suspect]
     Active Substance: OMEPRAZOLE MAGNESIUM
     Indication: Gastrooesophageal reflux disease
     Route: 065
     Dates: start: 2007, end: 2017
  5. PROTONIX [Suspect]
     Active Substance: PANTOPRAZOLE SODIUM
     Indication: Gastrooesophageal reflux disease
     Route: 065
     Dates: start: 2003, end: 2018
  6. PROTONIX [Suspect]
     Active Substance: PANTOPRAZOLE SODIUM
     Indication: Gastrooesophageal reflux disease
     Route: 065
     Dates: start: 2019, end: 2021
  7. PREVACID 24 HR [Suspect]
     Active Substance: LANSOPRAZOLE
     Indication: Gastrooesophageal reflux disease
     Route: 065
     Dates: start: 2009, end: 2018
  8. PREVACID [Suspect]
     Active Substance: LANSOPRAZOLE
     Indication: Gastrooesophageal reflux disease
     Route: 065
     Dates: start: 2003, end: 2018
  9. FUROSEMIDE [Concomitant]
     Active Substance: FUROSEMIDE
     Dates: start: 2019
  10. ROSUVASTATIN [Concomitant]
     Active Substance: ROSUVASTATIN
     Indication: Blood cholesterol
     Dates: start: 2018
  11. FLUOXETINE [Concomitant]
     Active Substance: FLUOXETINE HYDROCHLORIDE
     Indication: Depression
     Dates: start: 2004
  12. AZITHROMYCIN [Concomitant]
     Active Substance: AZITHROMYCIN
     Indication: Infection
     Dates: start: 2017
  13. AZITHROMYCIN [Concomitant]
     Active Substance: AZITHROMYCIN
     Indication: Infection
     Dates: start: 2019
  14. AMOXICILLIN [Concomitant]
     Active Substance: AMOXICILLIN
     Indication: Infection
     Dates: start: 2018
  15. AMOXICILLIN [Concomitant]
     Active Substance: AMOXICILLIN
     Indication: Infection
     Dates: start: 2019
  16. AMOXICILLIN [Concomitant]
     Active Substance: AMOXICILLIN
     Indication: Infection
     Dates: start: 2020
  17. SPIRONOLACTONE [Concomitant]
     Active Substance: SPIRONOLACTONE
     Indication: Blood pressure measurement
     Dates: start: 2019
  18. LISINOPRIL [Concomitant]
     Active Substance: LISINOPRIL
     Indication: Blood pressure measurement
     Dates: start: 2011
  19. DOXYCYCLINE [Concomitant]
     Active Substance: DOXYCYCLINE
     Indication: Infection
     Dates: start: 2020
  20. TYLENOL [Concomitant]
     Active Substance: ACETAMINOPHEN
     Indication: Pain
  21. ASPIRIN [Concomitant]
     Active Substance: ASPIRIN
     Indication: Pain
  22. VITAMIN D [Concomitant]
     Active Substance: VITAMIN D NOS
  23. VITAMIN B [Concomitant]
     Active Substance: VITAMIN B
  24. MULTI- VITAMIN [Concomitant]
  25. FAMOTIDINE [Concomitant]
     Active Substance: FAMOTIDINE
  26. PEPCID COMPLETE [Concomitant]
     Active Substance: CALCIUM CARBONATE\FAMOTIDINE\MAGNESIUM HYDROXIDE
  27. TAGAMET HB [Concomitant]
     Active Substance: CIMETIDINE
  28. ZANTAC [Concomitant]
     Active Substance: RANITIDINE HYDROCHLORIDE
  29. RANITIDINE [Concomitant]
     Active Substance: RANITIDINE
  30. TUMS [Concomitant]
     Active Substance: CALCIUM CARBONATE
  31. ROLAIDS [Concomitant]
     Active Substance: CALCIUM CARBONATE\MAGNESIUM HYDROXIDE
  32. MAALOX ANTACID [Concomitant]
     Active Substance: ALUMINUM HYDROXIDE\DIMETHICONE\MAGNESIUM HYDROXIDE
  33. VIAGRA [Concomitant]
     Active Substance: SILDENAFIL CITRATE
  34. ALBUTEROL [Concomitant]
     Active Substance: ALBUTEROL
  35. ERY [Concomitant]
     Active Substance: ERYTHROMYCIN
  36. PROMETHAZINE [Concomitant]
     Active Substance: PROMETHAZINE HYDROCHLORIDE
  37. ZOLOFT [Concomitant]
     Active Substance: SERTRALINE HYDROCHLORIDE
  38. CELEXA [Concomitant]
     Active Substance: CITALOPRAM HYDROBROMIDE
  39. HYDROCORTISONE [Concomitant]
     Active Substance: HYDROCORTISONE
  40. POLYETHYLENE GLYCOLS [Concomitant]
     Active Substance: POLYETHYLENE GLYCOLS
  41. LORAZEPAM [Concomitant]
     Active Substance: LORAZEPAM
  42. CEPHALEXIN [Concomitant]
     Active Substance: CEPHALEXIN
  43. PROPRANOLOL [Concomitant]
     Active Substance: PROPRANOLOL HYDROCHLORIDE
  44. DEPAKOTE [Concomitant]
     Active Substance: DIVALPROEX SODIUM
  45. MIRTAZAPINE [Concomitant]
     Active Substance: MIRTAZAPINE
  46. FERROUS SULFATE [Concomitant]
     Active Substance: FERROUS SULFATE
  47. GABAPENTIN [Concomitant]
     Active Substance: GABAPENTIN
  48. PREDNISONE [Concomitant]
     Active Substance: PREDNISONE
  49. VENTOLIN [Concomitant]
     Active Substance: ALBUTEROL SULFATE
  50. ONDANSETRON [Concomitant]
     Active Substance: ONDANSETRON
  51. LATANOPROST [Concomitant]
     Active Substance: LATANOPROST
  52. METOPROLOL [Concomitant]
     Active Substance: METOPROLOL
  53. DEXAMETHASONE [Concomitant]
     Active Substance: DEXAMETHASONE
  54. CLINDAMYCIN [Concomitant]
     Active Substance: CLINDAMYCIN
  55. OXYCODONE [Concomitant]
     Active Substance: OXYCODONE
  56. DICLOFENAC [Concomitant]
     Active Substance: DICLOFENAC
  57. MUPIROCIN [Concomitant]
     Active Substance: MUPIROCIN
  58. TACROLIMUS [Concomitant]
     Active Substance: TACROLIMUS
  59. AMLODIPINE [Concomitant]
     Active Substance: AMLODIPINE BESYLATE
  60. OLOPATADINE [Concomitant]
     Active Substance: OLOPATADINE
  61. MYCOPHENOLIC ACID [Concomitant]
     Active Substance: MYCOPHENOLIC ACID
  62. WARFARIN SODIUM [Concomitant]
     Active Substance: WARFARIN SODIUM
  63. LOKELMA [Concomitant]
     Active Substance: SODIUM ZIRCONIUM CYCLOSILICATE
  64. GENERLAC [Concomitant]
     Active Substance: LACTULOSE
  65. HYDROMET [Concomitant]
     Active Substance: HOMATROPINE METHYLBROMIDE\HYDROCODONE BITARTRATE
  66. XIFAXAN [Concomitant]
     Active Substance: RIFAXIMIN
  67. DIAZEPAM [Concomitant]
     Active Substance: DIAZEPAM

REACTIONS (5)
  - Acute kidney injury [Not Recovered/Not Resolved]
  - Chronic kidney disease [Not Recovered/Not Resolved]
  - Tubulointerstitial nephritis [Not Recovered/Not Resolved]
  - Renal failure [Unknown]
  - Chronic kidney disease-mineral and bone disorder [Unknown]

NARRATIVE: CASE EVENT DATE: 20180101
